FAERS Safety Report 17703217 (Version 1)
Quarter: 2020Q2

REPORT INFORMATION
  Report Type: Spontaneous
  Country: FR (occurrence: FR)
  Receive Date: 20200423
  Receipt Date: 20200423
  Transmission Date: 20200714
  Serious: Yes (Other)
  Sender: FDA-Public Use
  Company Number: FR-009507513-2004FRA006231

PATIENT
  Age: 32 Year
  Sex: Male

DRUGS (1)
  1. CANCIDAS [Suspect]
     Active Substance: CASPOFUNGIN ACETATE
     Indication: PYELONEPHRITIS
     Dosage: 70 MG THEN 50 MG/DAY, FORMULATION: POWDER FOR SOLUTION FOR INFUSION
     Route: 042
     Dates: start: 20200324, end: 20200327

REACTIONS (1)
  - Pancytopenia [Recovered/Resolved]

NARRATIVE: CASE EVENT DATE: 20200325
